FAERS Safety Report 8867141 (Version 1)
Quarter: 2012Q4

REPORT INFORMATION
  Report Type: 
  Country: US (occurrence: US)
  Receive Date: 20121025
  Receipt Date: 20121025
  Transmission Date: 20130627
  Serious: No
  Sender: FDA-Public Use
  Company Number: US-AMGEN-USASP2012014906

PATIENT
  Age: 62 Year
  Sex: Female
  Weight: 68.03 kg

DRUGS (5)
  1. ENBREL [Suspect]
     Indication: PRODUCT USED FOR UNKNOWN INDICATION
     Dosage: 50 mg, qwk
     Route: 058
  2. AMLODIPINE [Concomitant]
     Dosage: 10 mg, UNK
  3. SYNTHROID [Concomitant]
     Dosage: 200 mug, UNK
  4. PROTONIX [Concomitant]
     Dosage: 40 mg, UNK
  5. MULTIVITAMIN                       /00831701/ [Concomitant]
     Dosage: UNK

REACTIONS (1)
  - Proteinuria [Unknown]
